FAERS Safety Report 24699143 (Version 1)
Quarter: 2024Q4

REPORT INFORMATION
  Report Type: Spontaneous
  Country: US (occurrence: US)
  Receive Date: 20241205
  Receipt Date: 20241205
  Transmission Date: 20250114
  Serious: No
  Sender: ALEXION PHARMACEUTICALS
  Company Number: US-AstraZeneca-CH-00759761AP

PATIENT

DRUGS (2)
  1. BREZTRI [Suspect]
     Active Substance: BUDESONIDE\FORMOTEROL\GLYCOPYRROLATE
     Dosage: 160 MICROGRAM, BID
     Route: 065
  2. SYMBICORT AEROSPHERE [Concomitant]
     Active Substance: BUDESONIDE\FORMOTEROL FUMARATE

REACTIONS (7)
  - Incorrect dose administered [Unknown]
  - Overdose [Unknown]
  - Product dose omission issue [Unknown]
  - Pyrexia [Unknown]
  - Visual impairment [Unknown]
  - Device use issue [Unknown]
  - Incorrect dose administered by device [Unknown]
